FAERS Safety Report 5761197-4 (Version None)
Quarter: 2008Q2

REPORT INFORMATION
  Report Type: 
  Country: None (occurrence: None)
  Receive Date: 20080606
  Receipt Date: 20080603
  Transmission Date: 20081010
  Serious: Yes (Other)
  Sender: FDA-Public Use
  Company Number: D0057045A

PATIENT
  Age: 33 Year
  Sex: Female
  Weight: 56 kg

DRUGS (1)
  1. VALTREX [Suspect]
     Indication: GENITAL HERPES
     Route: 065
     Dates: start: 20080314, end: 20080401

REACTIONS (4)
  - BETA HAEMOLYTIC STREPTOCOCCAL INFECTION [None]
  - GENITAL HERPES [None]
  - GENITAL PAIN [None]
  - VULVAL DISORDER [None]
